FAERS Safety Report 15347760 (Version 1)
Quarter: 2018Q3

REPORT INFORMATION
  Report Type: Spontaneous
  Country: HU (occurrence: HU)
  Receive Date: 20180904
  Receipt Date: 20180904
  Transmission Date: 20181010
  Serious: Yes (Hospitalization, Other)
  Sender: FDA-Public Use
  Company Number: HU-PFIZER INC-2018351556

PATIENT
  Age: 76 Year
  Sex: Female

DRUGS (3)
  1. PALBOCICLIB [Suspect]
     Active Substance: PALBOCICLIB
     Dosage: 100 MG, CYCLIC (ONCE DAILY, IN 3/1 DOSAGE SCHEMA ON 21 CONSECUTIVE DAYS WHICH WAS FOLLOWS BY 7 DAYS)
     Route: 048
     Dates: start: 20180802, end: 20180805
  2. PALBOCICLIB [Suspect]
     Active Substance: PALBOCICLIB
     Indication: BREAST CANCER METASTATIC
     Dosage: 125 MG, CYCLIC (ONCE DAILY, IN 3/1 DOSAGE SCHEMA ON 21 CONSECUTIVE DAYS WHICH WAS FOLLOWS BY 7 DAYS)
     Route: 048
     Dates: start: 20180517, end: 20180801
  3. FASLODEX [Suspect]
     Active Substance: FULVESTRANT
     Indication: BREAST CANCER METASTATIC
     Dosage: UNK

REACTIONS (2)
  - Gastric perforation [Unknown]
  - Neutropenia [Unknown]

NARRATIVE: CASE EVENT DATE: 20180805
